FAERS Safety Report 5293961-2 (Version None)
Quarter: 2007Q2

REPORT INFORMATION
  Report Type: 
  Country: None (occurrence: None)
  Receive Date: 20070405
  Receipt Date: 20070320
  Transmission Date: 20071010
  Serious: Yes (Hospitalization)
  Sender: FDA-Public Use
  Company Number: 2007-01315

PATIENT
  Age: 60 Year
  Sex: Female

DRUGS (7)
  1. FORTAMET [Suspect]
     Dosage: ORAL
     Route: 048
  2. COZAAR [Suspect]
  3. DIURETICS [Suspect]
  4. AGGRENOX (ACETYLSALICYLIC ACID) [Concomitant]
  5. MICARDIS (TELEMISARTAN) [Concomitant]
  6. CLOPIDOGREL [Concomitant]
  7. PLACEBO [Concomitant]

REACTIONS (3)
  - CAMPYLOBACTER INTESTINAL INFECTION [None]
  - DEHYDRATION [None]
  - RENAL FAILURE ACUTE [None]
